FAERS Safety Report 6906466-7 (Version None)
Quarter: 2010Q3

REPORT INFORMATION
  Report Type: 
  Country: None (occurrence: None)
  Receive Date: 20100804
  Receipt Date: 20100720
  Transmission Date: 20110219
  Serious: Yes (Hospitalization)
  Sender: FDA-Public Use
  Company Number: DE-ELI_LILLY_AND_COMPANY-DE201007003156

PATIENT
  Sex: Male
  Weight: 88 kg

DRUGS (8)
  1. PEMETREXED [Suspect]
     Indication: NON-SMALL CELL LUNG CANCER
     Dosage: 1000 MG, UNKNOWN
     Route: 065
     Dates: start: 20100528
  2. CISPLATIN [Suspect]
     Indication: NON-SMALL CELL LUNG CANCER
     Dosage: 150 MG, UNKNOWN
     Route: 065
     Dates: start: 20100528
  3. OTHER PHARMA COMPANY INV DRUG [Suspect]
     Indication: NON-SMALL CELL LUNG CANCER
     Dosage: 800 MG, UNKNOWN
     Route: 065
     Dates: start: 20100528
  4. NEXIUM [Concomitant]
     Indication: PROPHYLAXIS
     Dates: start: 20100503
  5. OXAZEPAM [Concomitant]
     Indication: INSOMNIA
     Dosage: 10 MG, UNKNOWN
     Route: 065
     Dates: start: 20100503
  6. FOLSAN [Concomitant]
     Indication: PROPHYLAXIS
     Dates: start: 20100520
  7. VIT B12 [Concomitant]
     Indication: PROPHYLAXIS
     Dates: start: 20100520, end: 20100520
  8. MAGNESIUM VERLA /02088501/ [Concomitant]
     Indication: PROPHYLAXIS
     Dates: start: 20100617

REACTIONS (1)
  - PULMONARY EMBOLISM [None]
